FAERS Safety Report 23686456 (Version 1)
Quarter: 2024Q1

REPORT INFORMATION
  Report Type: Spontaneous
  Country: US (occurrence: None)
  Receive Date: 20240329
  Receipt Date: 20240329
  Transmission Date: 20240410
  Serious: Yes (Other)
  Sender: FDA-Public Use
  Company Number: 2024A073535

PATIENT
  Sex: Male

DRUGS (3)
  1. DURVALUMAB [Suspect]
     Active Substance: DURVALUMAB
     Route: 042
  2. CISPLATIN [Suspect]
     Active Substance: CISPLATIN
  3. GEMCITABINE [Suspect]
     Active Substance: GEMCITABINE

REACTIONS (1)
  - Malignant neoplasm progression [Unknown]
